FAERS Safety Report 9228218 (Version 1)
Quarter: 2013Q2

REPORT INFORMATION
  Report Type: Report from Study
  Country: RO (occurrence: RO)
  Receive Date: 20130412
  Receipt Date: 20130412
  Transmission Date: 20140414
  Serious: Yes (Death, Other)
  Sender: FDA-Public Use
  Company Number: RO-ROCHE-1210291

PATIENT
  Sex: 0

DRUGS (6)
  1. ALTEPLASE [Suspect]
     Indication: ACUTE MYOCARDIAL INFARCTION
     Route: 040
  2. ASPIRIN [Suspect]
     Indication: ACUTE MYOCARDIAL INFARCTION
     Dosage: 250-325 MG
     Route: 065
  3. STREPTOKINASE [Suspect]
     Indication: ACUTE MYOCARDIAL INFARCTION
     Dosage: HALF DOSE OF 75 MU IN 10 MIN
     Route: 065
  4. ENOXAPARIN [Suspect]
     Indication: ACUTE MYOCARDIAL INFARCTION
     Route: 042
  5. ENOXAPARIN [Suspect]
     Route: 058
  6. HEPARIN [Suspect]
     Indication: ACUTE MYOCARDIAL INFARCTION
     Dosage: 1000 IU/ 60 MIN
     Route: 065

REACTIONS (5)
  - Myocardial rupture [Fatal]
  - Cardiogenic shock [Fatal]
  - Reocclusion [Unknown]
  - Hypotension [Recovered/Resolved]
  - Haemorrhage [Unknown]
